FAERS Safety Report 5232162-0 (Version None)
Quarter: 2007Q1

REPORT INFORMATION
  Report Type: 
  Country: None (occurrence: None)
  Receive Date: 20061205
  Receipt Date: 20061011
  Transmission Date: 20070707
  Serious: No
  Sender: FDA-Public Use
  Company Number: PHEH2006US11532

PATIENT
  Age: 13 Year
  Sex: Female
  Weight: 40.4 kg

DRUGS (4)
  1. EXJADE [Suspect]
     Indication: HAEMOCHROMATOSIS
     Dosage: SEE IMAGE
     Route: 048
     Dates: start: 20060301, end: 20060901
  2. DEXAMETHASONE TAB [Concomitant]
  3. LASIX [Concomitant]
  4. HUMAN GROWTH HORMONE, RECOMBINANT (SOMATROPIN) [Concomitant]

REACTIONS (4)
  - ABDOMINAL PAIN [None]
  - DYSURIA [None]
  - HEADACHE [None]
  - PROTEIN URINE PRESENT [None]
